FAERS Safety Report 7910309-2 (Version None)
Quarter: 2011Q4

REPORT INFORMATION
  Report Type: 
  Country: None (occurrence: None)
  Receive Date: 20111111
  Receipt Date: 20111104
  Transmission Date: 20120403
  Serious: Yes (Other)
  Sender: FDA-Public Use
  Company Number: JP-JNJFOC-20110703403

PATIENT
  Sex: Male

DRUGS (7)
  1. PYRIDOXAL PHOSPHATE [Concomitant]
     Indication: PROPHYLAXIS
     Route: 048
     Dates: end: 20110705
  2. BETAMETHASONE DIPROPIONATE [Concomitant]
     Indication: PSORIASIS
     Route: 061
     Dates: start: 20100330
  3. ISONIAZID [Suspect]
     Indication: PROPHYLAXIS
     Dates: start: 20110426, end: 20110705
  4. BETAMETHASONE BUTYRATE PROPIONATE [Concomitant]
     Indication: PSORIASIS
     Route: 061
     Dates: start: 20100330
  5. STELARA [Suspect]
     Indication: PSORIASIS
     Route: 058
     Dates: start: 20110607, end: 20110705
  6. DOVONEX [Concomitant]
     Indication: PSORIASIS
     Route: 061
     Dates: start: 20100330
  7. LOCOIDON [Concomitant]
     Indication: PSORIASIS
     Route: 061
     Dates: start: 20100330

REACTIONS (1)
  - HEPATIC FUNCTION ABNORMAL [None]
